FAERS Safety Report 7191268-X (Version None)
Quarter: 2010Q4

REPORT INFORMATION
  Report Type: 
  Country: None (occurrence: None)
  Receive Date: 20101221
  Receipt Date: 20101221
  Transmission Date: 20110411
  Serious: No
  Sender: FDA-Public Use
  Company Number: None

PATIENT
  Sex: Female
  Weight: 56.6996 kg

DRUGS (1)
  1. LEVAQUIN [Suspect]
     Indication: BRONCHITIS
     Dosage: 1 OF 10 DAILY
     Dates: start: 20101027, end: 20101102

REACTIONS (2)
  - OEDEMA PERIPHERAL [None]
  - TENDON PAIN [None]
